FAERS Safety Report 16982408 (Version 1)
Quarter: 2019Q4

REPORT INFORMATION
  Report Type: Spontaneous
  Country: US (occurrence: US)
  Receive Date: 20191101
  Receipt Date: 20191101
  Transmission Date: 20200122
  Serious: No
  Sender: FDA-Public Use
  Company Number: US-AJANTA PHARMA USA INC.-2076317

PATIENT
  Age: 38 Year
  Sex: Female
  Weight: 84.09 kg

DRUGS (1)
  1. DULOXETINE (ANDA 208706) [Suspect]
     Active Substance: DULOXETINE
     Indication: DEPRESSION
     Route: 048
     Dates: start: 201907

REACTIONS (15)
  - Nausea [Recovered/Resolved]
  - Drug ineffective [Recovered/Resolved]
  - Hyperventilation [Recovered/Resolved]
  - Insomnia [Recovered/Resolved]
  - Anxiety [Recovered/Resolved]
  - Withdrawal syndrome [Recovered/Resolved]
  - Dizziness [Recovered/Resolved]
  - Crying [Recovered/Resolved]
  - Emotional disorder [Recovered/Resolved]
  - Paraesthesia [Recovered/Resolved]
  - Retching [Recovered/Resolved]
  - Flatulence [Recovered/Resolved]
  - Stress [Recovered/Resolved]
  - Anger [Recovered/Resolved]
  - Presyncope [Recovered/Resolved]

NARRATIVE: CASE EVENT DATE: 201907
